FAERS Safety Report 23893197 (Version 1)
Quarter: 2024Q2

REPORT INFORMATION
  Report Type: Spontaneous
  Country: US (occurrence: US)
  Receive Date: 20240524
  Receipt Date: 20240524
  Transmission Date: 20240716
  Serious: Yes (Hospitalization)
  Sender: FDA-Public Use
  Company Number: US-CATALYST PHARMACEUTICALS-US-CATA-24-00295

PATIENT
  Age: 6 Year
  Sex: Male
  Weight: 29.932 kg

DRUGS (5)
  1. AGAMREE [Suspect]
     Active Substance: VAMOROLONE
     Indication: Duchenne muscular dystrophy
     Dosage: 4 ML DAILY
     Route: 048
     Dates: start: 20240314, end: 2024
  2. AGAMREE [Suspect]
     Active Substance: VAMOROLONE
     Dosage: 2.5 ML DAILY
     Route: 048
     Dates: start: 20240509
  3. EXONDYS-51 [Concomitant]
     Indication: Duchenne muscular dystrophy
     Dosage: WEEKLY
     Route: 042
  4. ALBUTEROL [Concomitant]
     Active Substance: ALBUTEROL
     Indication: Cough
     Dosage: AS NEEDED
     Route: 055
  5. VITAMIN D3 [Concomitant]
     Active Substance: CHOLECALCIFEROL
     Indication: Bone disorder
     Dosage: DAILY
     Route: 065

REACTIONS (6)
  - Influenza [Not Recovered/Not Resolved]
  - Enuresis [Not Recovered/Not Resolved]
  - Urine output increased [Not Recovered/Not Resolved]
  - Frequent bowel movements [Not Recovered/Not Resolved]
  - Ear pain [Not Recovered/Not Resolved]
  - Pyrexia [Not Recovered/Not Resolved]

NARRATIVE: CASE EVENT DATE: 20240301
